FAERS Safety Report 11443337 (Version 3)
Quarter: 2016Q2

REPORT INFORMATION
  Report Type: Report from Study
  Country: JP (occurrence: JP)
  Receive Date: 20150901
  Receipt Date: 20160617
  Transmission Date: 20160815
  Serious: Yes (Other)
  Sender: FDA-Public Use
  Company Number: JP-009507513-1509JPN000482

PATIENT
  Sex: Female

DRUGS (3)
  1. DIAZOXIDE [Suspect]
     Active Substance: DIAZOXIDE
     Dosage: 2 MG, TID
     Route: 048
     Dates: start: 20140516, end: 20140527
  2. GLUCAGON. [Concomitant]
     Active Substance: GLUCAGON
     Indication: HYPOGLYCAEMIA
     Dosage: 1.2 (UNDER 1000 UNIT), QD
     Route: 042
     Dates: start: 20140502, end: 20140503
  3. DIAZOXIDE [Suspect]
     Active Substance: DIAZOXIDE
     Indication: HYPOGLYCAEMIA
     Dosage: 4 MG, TID
     Route: 048
     Dates: start: 20140502, end: 20140515

REACTIONS (1)
  - Patent ductus arteriosus [Recovered/Resolved]

NARRATIVE: CASE EVENT DATE: 20140507
